FAERS Safety Report 25571602 (Version 2)
Quarter: 2025Q3

REPORT INFORMATION
  Report Type: Spontaneous
  Country: MX (occurrence: MX)
  Receive Date: 20250717
  Receipt Date: 20250730
  Transmission Date: 20251021
  Serious: Yes (Hospitalization, Other)
  Sender: BIOGEN
  Company Number: MX-BIOGEN-2025BI01316844

PATIENT
  Age: 37 Year
  Sex: Female

DRUGS (2)
  1. TYSABRI [Suspect]
     Active Substance: NATALIZUMAB
     Indication: Multiple sclerosis
     Route: 050
     Dates: start: 2023
  2. TYSABRI [Suspect]
     Active Substance: NATALIZUMAB
     Route: 050
     Dates: start: 2022

REACTIONS (12)
  - Device related bacteraemia [Recovered/Resolved]
  - Septic shock [Recovered/Resolved]
  - Bradyarrhythmia [Recovered/Resolved]
  - Hepatobiliary infection [Unknown]
  - Hepatitis [Unknown]
  - Gastrointestinal infection [Unknown]
  - COVID-19 [Recovered/Resolved]
  - Intra-abdominal fluid collection [Unknown]
  - Gastrointestinal wall thickening [Unknown]
  - Cutibacterium test positive [Unknown]
  - Mycobacterium test positive [Unknown]
  - Transaminases increased [Unknown]

NARRATIVE: CASE EVENT DATE: 20250601
